FAERS Safety Report 8462872 (Version 4)
Quarter: 2013Q1

REPORT INFORMATION
  Report Type: Report from Study
  Country: JP (occurrence: JP)
  Receive Date: 20120316
  Receipt Date: 20130116
  Transmission Date: 20140127
  Serious: Yes (Hospitalization)
  Sender: FDA-Public Use
  Company Number: JP-JNJFOC-20120305944

PATIENT
  Age: 46 Year
  Sex: Male
  Weight: 70 kg

DRUGS (11)
  1. INVEGA [Suspect]
     Indication: SCHIZOPHRENIA
     Route: 048
     Dates: start: 20110608, end: 20110610
  2. INVEGA [Suspect]
     Indication: SCHIZOPHRENIA
     Route: 048
     Dates: start: 20110611, end: 20110703
  3. INVEGA [Suspect]
     Indication: SCHIZOPHRENIA
     Route: 048
     Dates: start: 20110704
  4. QUAZEPAM [Concomitant]
     Indication: SCHIZOPHRENIA
     Route: 048
     Dates: start: 20110603
  5. DEPAKENE R [Concomitant]
     Indication: EUPHORIC MOOD
     Route: 048
     Dates: start: 20110905
  6. DEPAKENE R [Concomitant]
     Indication: EUPHORIC MOOD
     Route: 048
     Dates: start: 20110603, end: 20110904
  7. DEPAKENE R [Concomitant]
     Indication: SCHIZOPHRENIA
     Route: 048
     Dates: start: 20110603, end: 20110904
  8. DEPAKENE R [Concomitant]
     Indication: SCHIZOPHRENIA
     Route: 048
     Dates: start: 20110905
  9. SENNOSIDE [Concomitant]
     Indication: CONSTIPATION
     Route: 048
  10. ROHYPNOL [Concomitant]
     Indication: INSOMNIA
     Route: 048
     Dates: start: 20111007
  11. ROHYPNOL [Concomitant]
     Indication: INSOMNIA
     Route: 048
     Dates: start: 20110905, end: 20111006

REACTIONS (2)
  - Inappropriate affect [Recovering/Resolving]
  - Insomnia [Recovering/Resolving]
